FAERS Safety Report 9259353 (Version 1)
Quarter: 2013Q2

REPORT INFORMATION
  Report Type: Spontaneous
  Country: US (occurrence: US)
  Receive Date: 20130427
  Receipt Date: 20130427
  Transmission Date: 20140414
  Serious: No
  Sender: FDA-Public Use
  Company Number: US-ASTRAZENECA-2013SE24923

PATIENT
  Age: 76 Year
  Sex: Female
  Weight: 106.6 kg

DRUGS (6)
  1. SYMBICORT [Suspect]
     Indication: CHRONIC OBSTRUCTIVE PULMONARY DISEASE
     Dosage: 160 MCG 2 PUFFS BID
     Route: 055
     Dates: start: 2012
  2. NEXIUM [Suspect]
     Indication: GASTROOESOPHAGEAL REFLUX DISEASE
     Route: 048
     Dates: start: 201302
  3. CELEBREX [Concomitant]
     Indication: ARTHRITIS
     Route: 048
  4. ACTONEL [Concomitant]
     Indication: BONE DISORDER
     Route: 048
  5. GABAPENTIN [Concomitant]
     Indication: NERVE INJURY
     Route: 048
  6. GABAPENTIN [Concomitant]
     Indication: NERVE INJURY
     Route: 048

REACTIONS (8)
  - Bronchitis [Unknown]
  - Vocal cord thickening [Unknown]
  - Gastrooesophageal reflux disease [Unknown]
  - Bronchial secretion retention [Unknown]
  - Dyspnoea [Unknown]
  - Hyperhidrosis [Unknown]
  - Dysphonia [Unknown]
  - Cough [Unknown]
